FAERS Safety Report 7854472-0 (Version None)
Quarter: 2011Q4

REPORT INFORMATION
  Report Type: 
  Country: None (occurrence: None)
  Receive Date: 20111026
  Receipt Date: 20111021
  Transmission Date: 20120403
  Serious: Yes (Other)
  Sender: FDA-Public Use
  Company Number: US-PFIZER INC-2011255868

PATIENT
  Sex: Female
  Weight: 60.771 kg

DRUGS (8)
  1. XANAX [Concomitant]
     Indication: ANXIETY
     Dosage: UNK, DAILY
  2. PRISTIQ [Suspect]
     Indication: DEPRESSION
     Dosage: 100 MG, UNK
     Route: 048
  3. CYMBALTA [Suspect]
     Indication: DEPRESSION
     Dosage: UNK
  4. AMBIEN [Concomitant]
     Indication: ANTIDEPRESSANT THERAPY
     Dosage: UNK
  5. ZOLOFT [Suspect]
     Indication: DEPRESSION
     Dosage: UNK
  6. ESTRADIOL [Concomitant]
     Indication: HORMONE THERAPY
     Dosage: UNK
  7. PROVIGIL [Concomitant]
     Indication: DISTURBANCE IN ATTENTION
     Dosage: UNK
  8. CARISOPRODOL [Concomitant]
     Indication: MUSCLE RELAXANT THERAPY
     Dosage: UNK, 2X/DAILY

REACTIONS (1)
  - LOSS OF CONSCIOUSNESS [None]
